FAERS Safety Report 9725564 (Version 1)
Quarter: 2013Q4

REPORT INFORMATION
  Report Type: Spontaneous
  Country: US (occurrence: None)
  Receive Date: 20131127
  Receipt Date: 20131127
  Transmission Date: 20140711
  Serious: Yes (Hospitalization)
  Sender: FDA-Public Use
  Company Number: US-2013-12201

PATIENT
  Age: 43 Year
  Sex: Male
  Weight: 76 kg

DRUGS (10)
  1. BUSULFEX [Suspect]
     Indication: STEM CELL TRANSPLANT
     Dosage: 246 (2 DOSES) 310 (2 DOSES) DAILY DOSE, IV DRIP
     Route: 041
     Dates: start: 20060726, end: 20060729
  2. FLUDARABINE [Suspect]
     Indication: STEM CELL TRANSPLANT
     Dosage: 48 UNK, DAILY DOSE, INTRAVENOUS
     Route: 042
     Dates: start: 20060725, end: 20060729
  3. ALEMTUZUMAB [Suspect]
     Indication: STEM CELL TRANSPLANT
     Dosage: 20 U NK, DAILY DOSE, INTRAVENOUS
     Route: 042
  4. CLONAZEPAM [Suspect]
     Indication: CONVULSION
     Dosage: 20 UNK, DAILY DOSE, INTRAVENOUS
     Route: 042
  5. CLONAZEPAM [Suspect]
     Indication: PROPHYLAXIS
     Dosage: 20 UNK, DAILY DOSE, INTRAVENOUS
     Route: 042
  6. PROGRAF (TACROLIMUS) [Concomitant]
  7. VAMCOMYCIN HCL (VANCOMYCIN HYDROCHLORIDE) [Concomitant]
  8. VANCOMYIN HCL (VANCOMYCIN HYDROCHLORIDE) [Concomitant]
  9. VORICONAZOLE (VORICONAZOLE) [Concomitant]
  10. DAPTOMYCIN (DAPTOMYCIN) [Concomitant]

REACTIONS (1)
  - Renal failure acute [None]
